FAERS Safety Report 5584695-5 (Version None)
Quarter: 2008Q1

REPORT INFORMATION
  Report Type: 
  Country: None (occurrence: None)
  Receive Date: 20080108
  Receipt Date: 20071229
  Transmission Date: 20080703
  Serious: Yes (Other)
  Sender: FDA-Public Use
  Company Number: IN-PFIZER INC-2008000012

PATIENT
  Sex: Female

DRUGS (4)
  1. CLINDAMYCIN PHOSPHATE [Suspect]
     Indication: MALARIA
     Route: 065
  2. CEFTRIAXONE [Concomitant]
  3. ACETAMINOPHEN [Concomitant]
  4. PANTOPRAZOLE SODIUM [Concomitant]

REACTIONS (1)
  - ABORTION SPONTANEOUS [None]
